FAERS Safety Report 6434232-8 (Version None)
Quarter: 2009Q4

REPORT INFORMATION
  Report Type: 
  Country: None (occurrence: None)
  Receive Date: 20091110
  Receipt Date: 20090717
  Transmission Date: 20100525
  Serious: No
  Sender: FDA-Public Use
  Company Number: US-ASTRAZENECA-2009SE10135

PATIENT
  Age: 14 Month
  Sex: Female
  Weight: 11.8 kg

DRUGS (2)
  1. PRILOSEC OTC [Suspect]
     Dosage: 1 TABLET, 1 ONLY FOR 1 DAY
     Route: 048
     Dates: start: 20090717, end: 20090717
  2. NONE REPORTED [Concomitant]

REACTIONS (2)
  - ACCIDENTAL DRUG INTAKE BY CHILD [None]
  - NO ADVERSE EVENT [None]
